FAERS Safety Report 9256816 (Version 1)
Quarter: 2013Q2

REPORT INFORMATION
  Report Type: Spontaneous
  Country: US (occurrence: None)
  Receive Date: 20130423
  Receipt Date: 20130423
  Transmission Date: 20140414
  Serious: Yes (Hospitalization)
  Sender: FDA-Public Use
  Company Number: 2013P1005091

PATIENT
  Sex: Male

DRUGS (1)
  1. AMIODARONE [Suspect]
     Indication: VENTRICULAR TACHYCARDIA
     Route: 064

REACTIONS (6)
  - Abortion spontaneous [None]
  - Pregnancy [None]
  - Torsade de pointes [None]
  - Caesarean section [None]
  - Apnoea neonatal [None]
  - Maternal drugs affecting foetus [None]
